FAERS Safety Report 6748060-7 (Version None)
Quarter: 2010Q2

REPORT INFORMATION
  Report Type: 
  Country: None (occurrence: None)
  Receive Date: 20100531
  Receipt Date: 20100524
  Transmission Date: 20101027
  Serious: Yes (Other)
  Sender: FDA-Public Use
  Company Number: US-BIOGENIDEC-2010BI017389

PATIENT
  Age: 29 Year
  Sex: Female

DRUGS (2)
  1. TYSABRI [Suspect]
     Indication: MULTIPLE SCLEROSIS
     Route: 042
     Dates: start: 20090214, end: 20090317
  2. TYSABRI [Suspect]
     Route: 042
     Dates: start: 20090919

REACTIONS (2)
  - ABORTION SPONTANEOUS [None]
  - PREGNANCY [None]
